FAERS Safety Report 5169151-0 (Version None)
Quarter: 2006Q4

REPORT INFORMATION
  Report Type: 
  Country: None (occurrence: None)
  Receive Date: 20061204
  Receipt Date: 20061122
  Transmission Date: 20070319
  Serious: Yes (Other)
  Sender: FDA-Public Use
  Company Number: 2006145201

PATIENT
  Age: 60 Year
  Sex: Female
  Weight: 78.0187 kg

DRUGS (3)
  1. LYRICA [Suspect]
     Indication: BACK PAIN
     Dosage: 150 MG (75 MG, 2 IN 1 D)
     Dates: start: 20060912, end: 20060922
  2. HYDROCODONE BITARTRATE [Suspect]
  3. IBUPROFEN [Concomitant]

REACTIONS (6)
  - APATHY [None]
  - EUPHORIC MOOD [None]
  - EYE OEDEMA [None]
  - EYE SWELLING [None]
  - HYPERSOMNIA [None]
  - MACULAR DEGENERATION [None]
